FAERS Safety Report 9476967 (Version 1)
Quarter: 2013Q3

REPORT INFORMATION
  Report Type: Spontaneous
  Country: CA (occurrence: CA)
  Receive Date: 20130826
  Receipt Date: 20130826
  Transmission Date: 20140515
  Serious: Yes (Hospitalization)
  Sender: FDA-Public Use
  Company Number: CA-BAXTER-2013BAX033026

PATIENT
  Age: 63 Year
  Sex: Male

DRUGS (1)
  1. DIANEAL PD4 SOLUTION WITH 2.5% DEXTROSE AND 2.5 MEQ/L CALCIUM [Suspect]
     Indication: HYPERTENSION
     Route: 033
     Dates: start: 201307, end: 20130802

REACTIONS (9)
  - Thrombosis [Recovered/Resolved]
  - Pain [Recovering/Resolving]
  - Gastrointestinal disorder [Recovering/Resolving]
  - Dysuria [Recovering/Resolving]
  - Movement disorder [Recovering/Resolving]
  - Movement disorder [Recovering/Resolving]
  - Catheter site discharge [Unknown]
  - Wound secretion [Unknown]
  - Thrombosis in device [Unknown]
